FAERS Safety Report 5683587-0 (Version None)
Quarter: 2008Q1

REPORT INFORMATION
  Report Type: 
  Country: None (occurrence: None)
  Receive Date: 20080326
  Receipt Date: 20070530
  Transmission Date: 20080703
  Serious: Yes (Hospitalization)
  Sender: FDA-Public Use
  Company Number: 6034082

PATIENT
  Age: 54 Year
  Sex: Female

DRUGS (1)
  1. METFORMIN HCL [Suspect]
     Indication: TYPE 2 DIABETES MELLITUS
     Dosage: (850 MG) ORAL
     Route: 048

REACTIONS (10)
  - ABDOMINAL PAIN [None]
  - AGITATION [None]
  - DEPRESSED LEVEL OF CONSCIOUSNESS [None]
  - DIARRHOEA [None]
  - HYPOTENSION [None]
  - HYPOVOLAEMIA [None]
  - LACTIC ACIDOSIS [None]
  - PERIPHERAL CIRCULATORY FAILURE [None]
  - RENAL FAILURE ACUTE [None]
  - TACHYCARDIA [None]
